FAERS Safety Report 23495220 (Version 1)
Quarter: 2024Q1

REPORT INFORMATION
  Report Type: Spontaneous
  Country: US (occurrence: None)
  Receive Date: 20240207
  Receipt Date: 20240207
  Transmission Date: 20240410
  Serious: No
  Sender: FDA-Public Use
  Company Number: None

PATIENT
  Age: 29 Year
  Sex: Male

DRUGS (2)
  1. ENTYVIO [Suspect]
     Active Substance: VEDOLIZUMAB
     Indication: Colitis ulcerative
     Dosage: OTHER FREQUENCY : EVERY8WEEKS;?
  2. ENTYVIO [Suspect]
     Active Substance: VEDOLIZUMAB
     Indication: Rectal haemorrhage

REACTIONS (5)
  - Arthralgia [None]
  - Headache [None]
  - Insurance issue [None]
  - Infusion related reaction [None]
  - Therapy interrupted [None]
